FAERS Safety Report 6179675-5 (Version None)
Quarter: 2009Q2

REPORT INFORMATION
  Report Type: 
  Country: None (occurrence: None)
  Receive Date: 20090505
  Receipt Date: 20090427
  Transmission Date: 20091009
  Serious: Yes (Hospitalization, Other)
  Sender: FDA-Public Use
  Company Number: PHHY2009BE15749

PATIENT
  Sex: Male

DRUGS (2)
  1. EXELON [Suspect]
     Dosage: 5 CM2
     Route: 062
     Dates: start: 20080901
  2. EXELON [Suspect]
     Dosage: 10 CM2
     Route: 062

REACTIONS (4)
  - DEMENTIA [None]
  - DERMATITIS ALLERGIC [None]
  - ERYTHEMA [None]
  - PRURITUS [None]
